FAERS Safety Report 25839853 (Version 1)
Quarter: 2025Q3

REPORT INFORMATION
  Report Type: Spontaneous
  Country: EU (occurrence: EU)
  Receive Date: 20250924
  Receipt Date: 20250924
  Transmission Date: 20251020
  Serious: Yes (Other)
  Sender: TAKEDA
  Company Number: None

PATIENT
  Age: 30 Year
  Sex: Male

DRUGS (1)
  1. BRINTELLIX [Suspect]
     Active Substance: VORTIOXETINE HYDROBROMIDE
     Indication: Depression
     Dosage: 10 MILLIGRAM, QD
     Dates: start: 20240701

REACTIONS (1)
  - Amnesia [Not Recovered/Not Resolved]

NARRATIVE: CASE EVENT DATE: 20240801
